FAERS Safety Report 17149455 (Version 1)
Quarter: 2019Q4

REPORT INFORMATION
  Report Type: Spontaneous
  Country: US (occurrence: US)
  Receive Date: 20191213
  Receipt Date: 20191213
  Transmission Date: 20200122
  Serious: No
  Sender: FDA-Public Use
  Company Number: US-ASTRAZENECA-2019SF63509

PATIENT
  Sex: Female

DRUGS (1)
  1. FASENRA [Suspect]
     Active Substance: BENRALIZUMAB
     Indication: ASTHMA
     Dosage: THE FIRST 3 INJECTIONS 4 WEEKS APART. PRIOR THE TO NEXT SCHEDULED DOSE AT 8 WEEKS,AFTER THE EVEN...
     Route: 058

REACTIONS (1)
  - Asthma [Unknown]
